FAERS Safety Report 5330904-7 (Version None)
Quarter: 2007Q2

REPORT INFORMATION
  Report Type: 
  Country: None (occurrence: None)
  Receive Date: 20070227
  Receipt Date: 20060118
  Transmission Date: 20071010
  Serious: Yes (Other)
  Sender: FDA-Public Use
  Company Number: 432840

PATIENT
  Age: 18 Year
  Sex: Female
  Weight: 65.3 kg

DRUGS (1)
  1. ACCUTANE [Suspect]
     Indication: ACNE
     Dosage: ORAL
     Route: 048
     Dates: start: 20000815, end: 20010215

REACTIONS (5)
  - ACNE [None]
  - COLITIS [None]
  - DRY SKIN [None]
  - EPISTAXIS [None]
  - LIP DRY [None]
